FAERS Safety Report 24260648 (Version 1)
Quarter: 2024Q3

REPORT INFORMATION
  Report Type: Spontaneous
  Country: FR (occurrence: FR)
  Receive Date: 20240828
  Receipt Date: 20240828
  Transmission Date: 20241017
  Serious: Yes (Death)
  Sender: PFIZER
  Company Number: None

PATIENT
  Age: 66 Year
  Sex: Male
  Weight: 70 kg

DRUGS (5)
  1. FLUOROURACIL [Suspect]
     Active Substance: FLUOROURACIL
     Indication: Adenocarcinoma gastric
     Dosage: 4550 MG, CYCLIC (7 COURSES)
     Route: 042
     Dates: start: 20240404, end: 20240627
  2. TRAZIMERA [Suspect]
     Active Substance: TRASTUZUMAB-QYYP
     Indication: Adenocarcinoma gastric
     Dosage: 262.5 MG, CYCLIC (8 COURSES)
     Route: 042
     Dates: start: 20240404, end: 20240611
  3. LEVOLEUCOVORIN CALCIUM [Suspect]
     Active Substance: LEVOLEUCOVORIN CALCIUM
     Indication: Adenocarcinoma gastric
     Dosage: 175 MG, CYCLIC (7 COURSES)
     Route: 042
     Dates: start: 20240404, end: 20240627
  4. OXALIPLATIN [Suspect]
     Active Substance: OXALIPLATIN
     Indication: Adenocarcinoma gastric
     Dosage: 150 MG, CYCLIC (7 COURSES)
     Route: 042
     Dates: start: 20240404, end: 20240627
  5. DOCETAXEL [Suspect]
     Active Substance: DOCETAXEL\DOCETAXEL ANHYDROUS
     Indication: Adenocarcinoma gastric
     Dosage: 88 MG, CYCLIC (6 COURSES)
     Route: 042
     Dates: start: 20240404, end: 20240616

REACTIONS (1)
  - Interstitial lung disease [Fatal]

NARRATIVE: CASE EVENT DATE: 20240618
